FAERS Safety Report 9927001 (Version 2)
Quarter: 2014Q1

REPORT INFORMATION
  Report Type: Spontaneous
  Country: US (occurrence: US)
  Receive Date: 20140226
  Receipt Date: 20140226
  Transmission Date: 20141002
  Serious: No
  Sender: FDA-Public Use
  Company Number: US-AMGEN-USASP2013074551

PATIENT
  Age: 50 Year
  Sex: Female

DRUGS (10)
  1. ENBREL [Suspect]
     Indication: PRODUCT USED FOR UNKNOWN INDICATION
     Dosage: 50 MG/ML, 2 TIMES/WK
     Route: 058
  2. LISINOPRIL [Concomitant]
     Dosage: 10 MG, UNK
  3. DOXYCYCLINE [Concomitant]
     Dosage: 150 MG, UNK
  4. ATORVASTATIN [Concomitant]
     Dosage: 10 MG, UNK
  5. HYDROCHLOROTHIAZIDE W/TRIAMTERENE [Concomitant]
     Dosage: UNK, 25-50 MG
  6. TAMOXIFEN [Concomitant]
     Dosage: 10 MG, UNK
  7. MULTIVITAMINS, PLAIN [Concomitant]
     Dosage: UNK
  8. FISH OIL [Concomitant]
     Dosage: UNK
  9. VITAMIN B12                        /00056201/ [Concomitant]
     Dosage: 1000 CR
  10. LUVOX [Concomitant]
     Dosage: 100 MG, UNK

REACTIONS (4)
  - Drug effect incomplete [Unknown]
  - Arthritis [Unknown]
  - Psoriasis [Unknown]
  - Injection site pain [Unknown]
